FAERS Safety Report 12140869 (Version 1)
Quarter: 2016Q1

REPORT INFORMATION
  Report Type: Spontaneous
  Country: CA (occurrence: CA)
  Receive Date: 20160303
  Receipt Date: 20160303
  Transmission Date: 20160526
  Serious: Yes (Other)
  Sender: FDA-Public Use
  Company Number: CA-TEVA-639523ACC

PATIENT
  Age: 47 Year
  Sex: Female
  Weight: 88 kg

DRUGS (2)
  1. VENLAFAXINE XR [Suspect]
     Active Substance: VENLAFAXINE HYDROCHLORIDE
     Indication: DEPRESSION
     Route: 048
  2. VENLAFAXINE XR [Suspect]
     Active Substance: VENLAFAXINE HYDROCHLORIDE
     Indication: ANXIETY

REACTIONS (13)
  - Dyskinesia [Recovered/Resolved]
  - Myalgia [Recovered/Resolved]
  - Confusional state [Recovered/Resolved]
  - Libido decreased [Recovered/Resolved]
  - Muscle spasms [Recovered/Resolved]
  - Visual impairment [Recovered/Resolved]
  - Bruxism [Recovered/Resolved]
  - Hyperhidrosis [Recovered/Resolved]
  - Insomnia [Recovered/Resolved]
  - Nervousness [Recovered/Resolved]
  - Muscle tightness [Recovered/Resolved]
  - Urinary retention [Recovered/Resolved]
  - Paraesthesia [Recovered/Resolved]
